FAERS Safety Report 21508135 (Version 5)
Quarter: 2024Q1

REPORT INFORMATION
  Report Type: Spontaneous
  Country: CA (occurrence: CA)
  Receive Date: 20221026
  Receipt Date: 20240319
  Transmission Date: 20240410
  Serious: Yes (Hospitalization, Other)
  Sender: FDA-Public Use
  Company Number: CA-ANIPHARMA-2021-CA-000205

PATIENT
  Age: 71 Year
  Sex: Male

DRUGS (17)
  1. CASODEX [Suspect]
     Active Substance: BICALUTAMIDE
     Indication: Prostate cancer metastatic
     Dosage: UNKNOWN DOSE AND FREQUENCY
     Route: 048
  2. METFORMIN [Concomitant]
     Active Substance: METFORMIN HYDROCHLORIDE
     Route: 048
  3. PANTOPRAZOLE SODIUM [Concomitant]
     Active Substance: PANTOPRAZOLE SODIUM
     Route: 048
  4. SENOKOT [Concomitant]
     Active Substance: SENNOSIDES
     Route: 048
  5. TADALAFIL [Concomitant]
     Active Substance: TADALAFIL
     Route: 048
  6. VALSARTAN [Concomitant]
     Active Substance: VALSARTAN
     Route: 048
  7. VITAMIN D NOS [Concomitant]
     Active Substance: VITAMIN D NOS
     Route: 048
  8. VITAMIN K [Concomitant]
     Active Substance: PHYTONADIONE
     Route: 048
  9. EDOXABAN [Concomitant]
     Active Substance: EDOXABAN
     Route: 065
  10. GOSERELIN [Suspect]
     Active Substance: GOSERELIN
     Dosage: UNKNOWN DOSE AND FREQUENCY
     Route: 058
  11. ENTYVIO [Suspect]
     Active Substance: VEDOLIZUMAB
     Dosage: 300 MG UNK
     Route: 042
     Dates: start: 20200206
  12. GOSERELIN [Suspect]
     Active Substance: GOSERELIN
     Route: 065
  13. ASPIRIN [Concomitant]
     Active Substance: ASPIRIN
     Route: 048
  14. CALCIUM [Concomitant]
     Active Substance: CALCIUM
     Route: 065
  15. PINAVERIUM BROMIDE [Concomitant]
     Active Substance: PINAVERIUM BROMIDE
     Route: 048
  16. FINASTERIDE [Concomitant]
     Active Substance: FINASTERIDE
     Route: 048
  17. JARDIANCE [Concomitant]
     Active Substance: EMPAGLIFLOZIN
     Route: 065

REACTIONS (13)
  - Diarrhoea [Recovered/Resolved]
  - Abdominal pain lower [Recovered/Resolved]
  - Constipation [Recovered/Resolved]
  - Pain [Recovered/Resolved]
  - Small intestinal obstruction [Recovered/Resolved]
  - Cardiac disorder [Recovered/Resolved]
  - Faeces hard [Recovered/Resolved]
  - Malaise [Recovered/Resolved]
  - Nausea [Recovered/Resolved]
  - Eczema [Recovered/Resolved]
  - Drug ineffective [Unknown]
  - Product use in unapproved indication [Unknown]
  - Metastases to bone [Recovered/Resolved]
